FAERS Safety Report 9653787 (Version 1)
Quarter: 2013Q4

REPORT INFORMATION
  Report Type: Spontaneous
  Country: US (occurrence: US)
  Receive Date: 20131029
  Receipt Date: 20131029
  Transmission Date: 20140711
  Serious: No
  Sender: FDA-Public Use
  Company Number: US-BIOGENIDEC-2013BI080995

PATIENT
  Age: 52 Year
  Sex: Female

DRUGS (9)
  1. TECFIDERA [Suspect]
     Indication: PRODUCT USED FOR UNKNOWN INDICATION
     Route: 048
     Dates: start: 20130620
  2. TECFIDERA [Suspect]
     Indication: PRODUCT USED FOR UNKNOWN INDICATION
     Route: 048
     Dates: start: 20130627
  3. ACCUPRIL [Concomitant]
  4. VITAMIN D3 [Concomitant]
  5. SIMVASTATIN [Concomitant]
  6. LEVOTHYROXINE [Concomitant]
  7. BACLOFEN [Concomitant]
  8. CYMBALTA [Concomitant]
  9. VALIUM [Concomitant]

REACTIONS (1)
  - Nausea [Unknown]
